FAERS Safety Report 24887198 (Version 1)
Quarter: 2025Q1

REPORT INFORMATION
  Report Type: Spontaneous
  Country: US (occurrence: US)
  Receive Date: 20250127
  Receipt Date: 20250127
  Transmission Date: 20250408
  Serious: No
  Sender: STALLERGENES
  Company Number: US-AIMMUNE THERAPEUTICS, INC.-2024AIMT00933

PATIENT
  Age: 9 Year
  Sex: Male
  Weight: 56.689 kg

DRUGS (4)
  1. PALFORZIA [Suspect]
     Active Substance: PEANUT
     Indication: Food allergy
     Dates: start: 20231129, end: 20231129
  2. PALFORZIA [Suspect]
     Active Substance: PEANUT
     Dates: start: 20231129, end: 20231129
  3. PALFORZIA [Suspect]
     Active Substance: PEANUT
     Dates: start: 20231129, end: 20231129
  4. PALFORZIA [Suspect]
     Active Substance: PEANUT
     Dates: start: 20231129, end: 20231129

REACTIONS (2)
  - Erythema [Recovered/Resolved]
  - Eye pruritus [Recovered/Resolved]

NARRATIVE: CASE EVENT DATE: 20231129
